FAERS Safety Report 7341979-8 (Version None)
Quarter: 2011Q1

REPORT INFORMATION
  Report Type: 
  Country: None (occurrence: None)
  Receive Date: 20110309
  Receipt Date: 20110225
  Transmission Date: 20110831
  Serious: Yes (Hospitalization)
  Sender: FDA-Public Use
  Company Number: PHHY2011US16234

PATIENT
  Sex: Male

DRUGS (1)
  1. EXELON [Suspect]
     Dosage: QD

REACTIONS (3)
  - LOSS OF CONSCIOUSNESS [None]
  - BRADYCARDIA [None]
  - TRANSIENT ISCHAEMIC ATTACK [None]
